FAERS Safety Report 25382344 (Version 1)
Quarter: 2025Q2

REPORT INFORMATION
  Report Type: Spontaneous
  Country: US (occurrence: US)
  Receive Date: 20250601
  Receipt Date: 20250601
  Transmission Date: 20250716
  Serious: No
  Sender: ELI LILLY AND COMPANY
  Company Number: US-ELI_LILLY_AND_COMPANY-US202505025177

PATIENT
  Age: 82 Year
  Sex: Female

DRUGS (4)
  1. FORTEO [Suspect]
     Active Substance: TERIPARATIDE
     Indication: Product used for unknown indication
     Route: 065
     Dates: start: 20250525
  2. FORTEO [Suspect]
     Active Substance: TERIPARATIDE
     Route: 065
  3. JANTOVEN [Concomitant]
     Active Substance: WARFARIN SODIUM
     Indication: Fibromuscular dysplasia
     Route: 065
     Dates: start: 2005
  4. LEVOFLOXACIN [Concomitant]
     Active Substance: LEVOFLOXACIN
     Indication: Product used for unknown indication
     Route: 065

REACTIONS (6)
  - Injection site rash [Unknown]
  - Injury associated with device [Unknown]
  - Product administered at inappropriate site [Unknown]
  - Contusion [Unknown]
  - Feeling abnormal [Unknown]
  - Dizziness [Recovering/Resolving]
